FAERS Safety Report 6832329-1 (Version None)
Quarter: 2010Q3

REPORT INFORMATION
  Report Type: 
  Country: None (occurrence: None)
  Receive Date: 20100712
  Receipt Date: 20100629
  Transmission Date: 20110219
  Serious: Yes (Hospitalization, Other)
  Sender: FDA-Public Use
  Company Number: US-BIOGENIDEC-2009BI033028

PATIENT
  Sex: Female

DRUGS (2)
  1. TYSABRI [Suspect]
     Indication: MULTIPLE SCLEROSIS
     Route: 042
     Dates: start: 20041227
  2. TYSABRI [Suspect]
     Route: 042
     Dates: start: 20061205, end: 20100222

REACTIONS (13)
  - ALCOHOLISM [None]
  - AMNESIA [None]
  - BONE NEOPLASM MALIGNANT [None]
  - DRUG ABUSER [None]
  - EPILEPSY [None]
  - HEADACHE [None]
  - INTRAOCULAR MELANOMA [None]
  - JUDGEMENT IMPAIRED [None]
  - METASTATIC NEOPLASM [None]
  - NEOPLASM MALIGNANT [None]
  - NUCLEAR MAGNETIC RESONANCE IMAGING BRAIN ABNORMAL [None]
  - POSTOPERATIVE WOUND INFECTION [None]
  - PYREXIA [None]
